FAERS Safety Report 5736843-1 (Version None)
Quarter: 2008Q2

REPORT INFORMATION
  Report Type: 
  Country: None (occurrence: None)
  Receive Date: 20080508
  Receipt Date: 20080422
  Transmission Date: 20081010
  Serious: Yes (Other)
  Sender: FDA-Public Use
  Company Number: S08-FRA-01641-01

PATIENT
  Age: 87 Year
  Sex: Female

DRUGS (5)
  1. CITALOPRAM HYDROBROMIDE [Suspect]
     Dosage: 10 MG QD PO
     Route: 048
     Dates: start: 20080311
  2. SINTROM [Suspect]
     Indication: PULMONARY EMBOLISM
     Dosage: 2 MG QD PO
     Route: 048
     Dates: end: 20080401
  3. SINTROM (ACENOUMAROL) [Suspect]
     Indication: PULMONARY EMBOLISM
     Dosage: 5 MG QD PO
     Route: 048
     Dates: start: 20080402
  4. LASIX [Concomitant]
  5. ISOPTIN [Concomitant]

REACTIONS (3)
  - DRUG INTERACTION [None]
  - HAEMATOMA [None]
  - INTERNATIONAL NORMALISED RATIO INCREASED [None]
